FAERS Safety Report 6223741-2 (Version None)
Quarter: 2009Q2

REPORT INFORMATION
  Report Type: 
  Country: None (occurrence: None)
  Receive Date: 20090611
  Receipt Date: 20090408
  Transmission Date: 20091009
  Serious: No
  Sender: FDA-Public Use
  Company Number: PR-ABBOTT-09P-131-0567236-00

PATIENT
  Sex: Male
  Weight: 65.376 kg

DRUGS (6)
  1. HUMIRA [Suspect]
     Indication: PSORIASIS
     Route: 058
     Dates: start: 20090121
  2. GLUCOSAMINE [Concomitant]
     Indication: SUPPLEMENTATION THERAPY
     Route: 048
  3. VITAMIN E [Concomitant]
     Indication: VITAMIN SUPPLEMENTATION
     Route: 048
  4. OTC LUBRICANT AND RED EYE DROPS [Concomitant]
     Indication: DRY EYE
  5. OTC LUBRICANT AND RED EYE DROPS [Concomitant]
     Indication: OCULAR HYPERAEMIA
  6. LOVAZA [Concomitant]
     Indication: SUPPLEMENTATION THERAPY
     Route: 048

REACTIONS (2)
  - VISION BLURRED [None]
  - VISUAL IMPAIRMENT [None]
